FAERS Safety Report 5889532-7 (Version None)
Quarter: 2008Q3

REPORT INFORMATION
  Report Type: 
  Country: None (occurrence: None)
  Receive Date: 20080919
  Receipt Date: 20080909
  Transmission Date: 20090109
  Serious: Yes (Hospitalization)
  Sender: FDA-Public Use
  Company Number: FR-ELI_LILLY_AND_COMPANY-FR200809001733

PATIENT
  Sex: Female

DRUGS (2)
  1. GEMZAR [Suspect]
     Indication: BILE DUCT CANCER
     Dosage: 1748 MG, UNKNOWN
     Route: 042
     Dates: start: 20080814, end: 20080814
  2. ELOXATIN [Concomitant]
     Indication: BILE DUCT CANCER
     Dosage: 149 MG, UNKNOWN
     Route: 042
     Dates: start: 20080814, end: 20080814

REACTIONS (4)
  - CHILLS [None]
  - HYPERTHERMIA [None]
  - TREMOR [None]
  - VOMITING [None]
